FAERS Safety Report 9721802 (Version 2)
Quarter: 2013Q4

REPORT INFORMATION
  Report Type: Spontaneous
  Country: US (occurrence: US)
  Receive Date: 20131201
  Receipt Date: 20131201
  Transmission Date: 20140711
  Serious: No
  Sender: FDA-Public Use
  Company Number: US-ABBVIE-13P-163-1154950-00

PATIENT
  Sex: Male

DRUGS (2)
  1. ANDROGEL [Suspect]
     Indication: BLOOD TESTOSTERONE DECREASED
     Route: 061
     Dates: start: 201306, end: 201306
  2. ANDROGEL [Suspect]
     Dosage: APPLIES 5 DAYS A WEEK; APPLIES FOR 2 DAYS, THEN SKIPS A DAY
     Route: 061

REACTIONS (1)
  - Blood testosterone increased [Not Recovered/Not Resolved]
